FAERS Safety Report 5120089-4 (Version None)
Quarter: 2006Q3

REPORT INFORMATION
  Report Type: 
  Country: None (occurrence: None)
  Receive Date: 20060929
  Receipt Date: 20060919
  Transmission Date: 20061208
  Serious: Yes (Death, Life-Threatening)
  Sender: FDA-Public Use
  Company Number: 05H-044-0300536-00

PATIENT
  Sex: Female
  Weight: 62 kg

DRUGS (2)
  1. PROPOFOL [Suspect]
     Indication: ANAESTHESIA
     Dosage: 150 MG, INTRAVENOUS
     Route: 042
     Dates: start: 20050330, end: 20050330
  2. COZAAR [Concomitant]

REACTIONS (6)
  - ANAPHYLACTIC REACTION [None]
  - ANGIONEUROTIC OEDEMA [None]
  - ANOXIA [None]
  - CARDIAC ARREST [None]
  - DRUG INTERACTION [None]
  - SALIVARY HYPERSECRETION [None]
